FAERS Safety Report 21642318 (Version 1)
Quarter: 2022Q4

REPORT INFORMATION
  Report Type: Other
  Country: US (occurrence: None)
  Receive Date: 20221125
  Receipt Date: 20221125
  Transmission Date: 20230113
  Serious: No
  Sender: FDA-Public Use
  Company Number: US-ROCHE-3225035

PATIENT
  Age: 41 Year
  Sex: Female
  Weight: 95.340 kg

DRUGS (6)
  1. OCREVUS [Suspect]
     Active Substance: OCRELIZUMAB
     Indication: Relapsing-remitting multiple sclerosis
     Route: 042
     Dates: start: 202111
  2. LAMOTRIGINE [Concomitant]
     Active Substance: LAMOTRIGINE
  3. DOXYCYCLINE [Concomitant]
     Active Substance: DOXYCYCLINE
  4. GABAPENTIN [Concomitant]
     Active Substance: GABAPENTIN
  5. MYRBETRIQ [Concomitant]
     Active Substance: MIRABEGRON
  6. AIMOVIG [Concomitant]
     Active Substance: ERENUMAB-AOOE

REACTIONS (2)
  - COVID-19 [Not Recovered/Not Resolved]
  - Immunodeficiency [Not Recovered/Not Resolved]

NARRATIVE: CASE EVENT DATE: 20211101
